FAERS Safety Report 8415592-5 (Version None)
Quarter: 2012Q2

REPORT INFORMATION
  Report Type: 
  Country: None (occurrence: None)
  Receive Date: 20120530
  Receipt Date: 20120515
  Transmission Date: 20120825
  Serious: Yes (Hospitalization, Other)
  Sender: FDA-Public Use
  Company Number: CIP11002243

PATIENT
  Age: 58 Year
  Sex: Female

DRUGS (60)
  1. PREVIDENT (SODIUM FLUORIDE) [Concomitant]
  2. PAROXETINE HCL [Concomitant]
  3. FOLPLEX (CYANOCOBALAMIN, FOLIC ACID, PYRIDOXINE HYDROCHLORIDE) [Concomitant]
  4. TRAMADOL/APAP (PARACETAMOL, TRAMADOL HYDROCHLORIDE) [Concomitant]
  5. HYDROXYZINE PAMOATE [Concomitant]
  6. PREMARIN [Concomitant]
  7. SONATA (ZALEPLON0 [Concomitant]
  8. PREVALITE [Concomitant]
  9. CLONAZEPAM (CLONZEPAM) [Concomitant]
  10. LUNESTA [Concomitant]
  11. PRECOSE [Concomitant]
  12. ZOFRAN [Concomitant]
  13. TERAZOSIN HCL [Concomitant]
  14. CIMETIDINE [Concomitant]
  15. MUPIROCIN [Concomitant]
  16. CHLORPROMAZINE [Concomitant]
  17. NYSTATIN W/TRIAMCINOLONE [Concomitant]
  18. ACTONEL [Suspect]
     Indication: OSTEOPOROSIS
     Dosage: 35 MG ONCE WEEKLY, ORAL
     Route: 048
     Dates: start: 20041206, end: 20060313
  19. CHLORAL HYDRATE (CHLORAL HYDRATE) [Concomitant]
  20. QUI8NINE SULFATE (QUININE SULFATE) [Concomitant]
  21. BUTALBITAL/APAP (BUTALBITAL, PARACETAMOL) [Concomitant]
  22. PYRIDIUM (PHENAZOPYRIDINE HYDROCHLORIDE) [Concomitant]
  23. NITROFURANTOIN [Concomitant]
  24. MIRTAZAPNE (MIRTAZAPINE) [Concomitant]
  25. MECLIZINE [Concomitant]
  26. NALTREXONE HYDROCHLORIDE [Concomitant]
  27. FERGON [Concomitant]
  28. VITAMIN B12 [Concomitant]
  29. BENZTROPINE MESYLATE [Concomitant]
  30. MICARDIS [Concomitant]
  31. ZOMIG [Concomitant]
  32. ALLEGRA D (FEDOFENADINE HYDROCHLORIDE, PSEUDOEPHEDRNE HYDROCHLORIDE) [Concomitant]
  33. ANTIPYRINE W/BENZOCAINE (BENZOCAINE, PHENAZONE) [Concomitant]
  34. TRIAMCINOLONE [Concomitant]
  35. FEXOFENADINE HCL [Concomitant]
  36. MULTI-VITAMINS [Concomitant]
  37. EXCEDRIN MIGRAINE (ACETYLSALICYLIC ACID, CAFFEINE, PARACETAMOL) [Concomitant]
  38. RECLAST [Suspect]
     Indication: OSTEOPOROSIS
     Dates: start: 20101101
  39. HALOPERIDOL LACTATE [Concomitant]
  40. AMOXICILLIN [Concomitant]
  41. SYNTHROID [Concomitant]
  42. CIPROFLOXACIN [Concomitant]
  43. CYCLOBENZAPRINE [Concomitant]
  44. CARAFATE [Concomitant]
  45. ORPHENADRIEN (ORPHENADRINE) [Concomitant]
  46. ASCORBIC ACID [Concomitant]
  47. APAP W/CODEINE (CODEINE, PARACETAMOL) [Concomitant]
  48. AXERT [Concomitant]
  49. CYMBALTA [Concomitant]
  50. BONIVA [Suspect]
     Indication: OSTEOPOROSIS
     Dosage: 150 MG ONCE MONTHLY, ORAL
     Route: 048
     Dates: start: 20060306, end: 20091130
  51. SEROQUEL [Concomitant]
  52. ENABLEX [Concomitant]
  53. CARISOPRODOL (CARISOPRODOL) [Concomitant]
  54. VITAMIN B (VITAMIN B COMPLEX) [Concomitant]
  55. FOSAMAX [Suspect]
     Indication: OSTEOPOROSIS
     Dosage: 70 MG SINGLE DOSE, ORAL
     Route: 048
     Dates: start: 20050929, end: 20050929
  56. TOPAMAX [Concomitant]
  57. GABITRIL [Concomitant]
  58. ACIPHEX [Concomitant]
  59. NORVASC [Concomitant]
  60. VAGIFEM [Concomitant]

REACTIONS (24)
  - OSTEOPOROTIC FRACTURE [None]
  - PATHOLOGICAL FRACTURE [None]
  - LOW TURNOVER OSTEOPATHY [None]
  - PAIN [None]
  - MOBILITY DECREASED [None]
  - MULTIPLE FRACTURES [None]
  - OSTEOLYSIS [None]
  - DYSARTHRIA [None]
  - FALL [None]
  - FEMUR FRACTURE [None]
  - FRACTURE DISPLACEMENT [None]
  - GROIN PAIN [None]
  - BONE DISORDER [None]
  - MUSCLE HAEMORRHAGE [None]
  - HYPONATRAEMIA [None]
  - FRACTURE NONUNION [None]
  - STRESS FRACTURE [None]
  - ARTHRALGIA [None]
  - MULTIPLE INJURIES [None]
  - BONE GRAFT [None]
  - MASS [None]
  - STAPHYLOCOCCAL INFECTION [None]
  - HIP DEFORMITY [None]
  - MUSCLE RUPTURE [None]
